FAERS Safety Report 8463599 (Version 2)
Quarter: 2013Q2

REPORT INFORMATION
  Report Type: Spontaneous
  Country: US (occurrence: None)
  Receive Date: 20120227
  Receipt Date: 20120525
  Transmission Date: 20140414
  Serious: No
  Sender: FDA-Public Use
  Company Number: 342746

PATIENT
  Age: 78 Year
  Sex: Male

DRUGS (1)
  1. VICTOZA [Suspect]
     Indication: TYPE 2 DIABETES MELLITUS
     Dosage: 1.2 MG, QD, SUBCUTANEOUS?.6 MG QD SC.
     Route: 058

REACTIONS (5)
  - ABDOMINAL DISCOMFORT [None]
  - FLATULENCE [None]
  - ERUCTATION [None]
  - ABDOMINAL PAIN UPPER [None]
  - DYSPEPSIA [None]
